FAERS Safety Report 5632864-8 (Version None)
Quarter: 2008Q1

REPORT INFORMATION
  Report Type: 
  Country: None (occurrence: None)
  Receive Date: 20080221
  Receipt Date: 20071106
  Transmission Date: 20080703
  Serious: Yes (Other)
  Sender: FDA-Public Use
  Company Number: US-BAYER-US-2007-039424

PATIENT
  Age: 57 Year
  Sex: Male
  Weight: 93 kg

DRUGS (1)
  1. LEUKINE [Suspect]
     Route: 058
     Dates: start: 20070818, end: 20071025

REACTIONS (11)
  - CHILLS [None]
  - DIZZINESS [None]
  - DYSPNOEA [None]
  - FATIGUE [None]
  - FEELING HOT [None]
  - HEADACHE [None]
  - HEART RATE INCREASED [None]
  - INJECTION SITE RASH [None]
  - NAUSEA [None]
  - VISUAL DISTURBANCE [None]
  - WEIGHT DECREASED [None]
